FAERS Safety Report 6903919 (Version 2)
Quarter: 2012Q4

REPORT INFORMATION
  Report Type: 
  Country: US (occurrence: None)
  Receive Date: 20090126
  Receipt Date: 20120907
  Transmission Date: 20130627
  Serious: Yes (Hospitalization, Other)
  Sender: FDA-Public Use
  Company Number: 2009AP000086

PATIENT
  Age: 68 Year
  Sex: Male

DRUGS (2)
  1. AMIODARONE HCL [Suspect]
     Dosage: 800 MG, QD;
  2. WARFARIN SODIUM [Concomitant]

REACTIONS (25)
  - Cough [None]
  - Atrial fibrillation [None]
  - Pulmonary mass [None]
  - Radiculopathy [None]
  - Axonal neuropathy [None]
  - Toxicity to various agents [None]
  - Dysarthria [None]
  - Muscular weakness [None]
  - Fall [None]
  - Pain in extremity [None]
  - Arthralgia [None]
  - Hypoaesthesia [None]
  - Paraesthesia [None]
  - CSF protein increased [None]
  - Guillain-Barre syndrome [None]
  - No therapeutic response [None]
  - Pulmonary necrosis [None]
  - Bronchiolitis [None]
  - Granulomatosis with polyangiitis [None]
  - Organising pneumonia [None]
  - Pleurisy [None]
  - Lung abscess [None]
  - Interstitial lung disease [None]
  - Paraesthesia [None]
  - Paraneoplastic syndrome [None]
